FAERS Safety Report 4901649-X (Version None)
Quarter: 2006Q1

REPORT INFORMATION
  Report Type: 
  Country: None (occurrence: None)
  Receive Date: 20060201
  Receipt Date: 20060201
  Transmission Date: 20060701
  Serious: Yes (Other)
  Sender: FDA-Public Use
  Company Number: None

PATIENT
  Sex: Male
  Weight: 93.8946 kg

DRUGS (2)
  1. VYTORIN [Suspect]
     Indication: DYSLIPIDAEMIA
     Dosage: 10/40MG PO Q BEDTIME
     Route: 048
  2. LORATADINE [Concomitant]

REACTIONS (2)
  - DECREASED ACTIVITY [None]
  - FEELING ABNORMAL [None]
